FAERS Safety Report 5319846-0 (Version None)
Quarter: 2007Q2

REPORT INFORMATION
  Report Type: 
  Country: None (occurrence: None)
  Receive Date: 20070509
  Receipt Date: 20070503
  Transmission Date: 20071010
  Serious: Yes (Death, Other)
  Sender: FDA-Public Use
  Company Number: PHEH2007US06408

PATIENT
  Age: 74 Year
  Sex: Male
  Weight: 60 kg

DRUGS (7)
  1. EXJADE [Suspect]
     Indication: IRON OVERLOAD
     Dosage: 500 MG, QD
     Route: 048
     Dates: start: 20060601, end: 20060821
  2. GM COLONY STIMULATING FACTOR [Concomitant]
     Indication: RED BLOOD CELL ABNORMALITY
  3. ASPIRIN [Concomitant]
     Indication: CORONARY ARTERY DISEASE
  4. NEXIUM [Concomitant]
     Indication: GASTROINTESTINAL DISORDER
  5. FOLIC ACID [Concomitant]
  6. CALCIUM CHLORIDE [Concomitant]
  7. PLAVIX [Concomitant]

REACTIONS (9)
  - ABDOMINAL DISCOMFORT [None]
  - AORTIC STENOSIS [None]
  - ARTHRALGIA [None]
  - CARDIAC FAILURE CONGESTIVE [None]
  - HEADACHE [None]
  - MALAISE [None]
  - MYALGIA [None]
  - MYELODYSPLASTIC SYNDROME [None]
  - NAUSEA [None]
